FAERS Safety Report 16202896 (Version 1)
Quarter: 2019Q2

REPORT INFORMATION
  Report Type: Spontaneous
  Country: AU (occurrence: AU)
  Receive Date: 20190416
  Receipt Date: 20190416
  Transmission Date: 20190711
  Serious: Yes (Hospitalization, Other)
  Sender: FDA-Public Use
  Company Number: AU-MYLANLABS-2019M1036147

PATIENT
  Age: 70 Year
  Sex: Female

DRUGS (5)
  1. IMMUNOGLOBULIN                     /00025201/ [Concomitant]
     Active Substance: HUMAN IMMUNOGLOBULIN G
     Route: 050
  2. METHOTREXATE. [Suspect]
     Active Substance: METHOTREXATE
     Indication: IMMUNOSUPPRESSANT DRUG THERAPY
     Route: 048
  3. RIVAROXABAN [Concomitant]
     Active Substance: RIVAROXABAN
     Indication: ATRIAL FIBRILLATION
     Route: 065
  4. HYDROXYCHLOROQUINE [Suspect]
     Active Substance: HYDROXYCHLOROQUINE
     Indication: IMMUNOSUPPRESSANT DRUG THERAPY
     Dosage: 200 MILLIGRAM, QD
     Route: 065
  5. PREDNISOLONE. [Suspect]
     Active Substance: PREDNISOLONE
     Indication: IMMUNOSUPPRESSANT DRUG THERAPY
     Dosage: 8 MILLIGRAM, QD
     Route: 065

REACTIONS (9)
  - Bone abscess [Recovering/Resolving]
  - Sepsis [Recovering/Resolving]
  - Cachexia [Recovering/Resolving]
  - Enterobacter infection [Recovering/Resolving]
  - Mycobacterium avium complex infection [Recovering/Resolving]
  - Weight decreased [Recovering/Resolving]
  - Acid fast bacilli infection [Recovering/Resolving]
  - Skin infection [Recovering/Resolving]
  - Peptostreptococcus infection [Recovering/Resolving]
